FAERS Safety Report 21400258 (Version 1)
Quarter: 2022Q3

REPORT INFORMATION
  Report Type: Spontaneous
  Country: US (occurrence: None)
  Receive Date: 20220929
  Receipt Date: 20220929
  Transmission Date: 20221026
  Serious: Yes (Hospitalization, Disabling)
  Sender: FDA-Public Use
  Company Number: None

PATIENT
  Age: 76 Year
  Sex: Male
  Weight: 84.46 kg

DRUGS (14)
  1. TEMOZOLOMIDE [Suspect]
     Active Substance: TEMOZOLOMIDE
     Indication: Neoplasm malignant
     Dosage: OTHER FREQUENCY : 5 X A DAY;?
     Route: 048
     Dates: start: 20220726
  2. ATOVAQUONE [Concomitant]
     Active Substance: ATOVAQUONE
  3. Triamcinolone 0.5% cream [Concomitant]
  4. Potasssium [Concomitant]
  5. ONDANSETRON [Concomitant]
     Active Substance: ONDANSETRON
  6. ASPIRIN [Concomitant]
     Active Substance: ASPIRIN
  7. FINASTERIDE [Concomitant]
     Active Substance: FINASTERIDE
  8. FUROSEMIDE [Concomitant]
     Active Substance: FUROSEMIDE
  9. LOMOTIL [Concomitant]
     Active Substance: ATROPINE SULFATE\DIPHENOXYLATE HYDROCHLORIDE
  10. TAMSULOSIN [Concomitant]
     Active Substance: TAMSULOSIN
  11. Atorvastatn [Concomitant]
  12. CARVEDILOL [Concomitant]
     Active Substance: CARVEDILOL
  13. LOSARTAN [Concomitant]
     Active Substance: LOSARTAN
  14. Oybutinin [Concomitant]

REACTIONS (1)
  - Aortic disorder [None]
